FAERS Safety Report 7673427-2 (Version None)
Quarter: 2011Q3

REPORT INFORMATION
  Report Type: 
  Country: None (occurrence: None)
  Receive Date: 20110810
  Receipt Date: 20110805
  Transmission Date: 20111222
  Serious: No
  Sender: FDA-Public Use
  Company Number: US-PFIZER INC-2011139461

PATIENT
  Sex: Female
  Weight: 85.261 kg

DRUGS (5)
  1. METFORMIN HYDROCHLORIDE/SITAGLIPTIN [Concomitant]
     Dosage: UNK
  2. PROZAC [Concomitant]
     Dosage: UNK
  3. ABILIFY [Concomitant]
     Dosage: UNK
  4. SIMVASTATIN [Concomitant]
     Dosage: UNK
  5. TOVIAZ [Suspect]
     Indication: HYPERTONIC BLADDER
     Dosage: 8 MG, 1X/DAY
     Route: 048
     Dates: start: 20110621

REACTIONS (5)
  - NASAL DRYNESS [None]
  - DRY MOUTH [None]
  - BURNING SENSATION [None]
  - DRY THROAT [None]
  - FEELING ABNORMAL [None]
